FAERS Safety Report 6971953-2 (Version None)
Quarter: 2010Q3

REPORT INFORMATION
  Report Type: 
  Country: None (occurrence: None)
  Receive Date: 20100908
  Receipt Date: 20100908
  Transmission Date: 20110219
  Serious: Yes (Other)
  Sender: FDA-Public Use
  Company Number: None

PATIENT
  Sex: Female

DRUGS (8)
  1. AMPYRA [Suspect]
     Indication: MULTIPLE SCLEROSIS
     Dosage: 10MG Q12H PO
     Route: 048
     Dates: start: 20100804
  2. AVALIDE [Concomitant]
  3. JANUVIA [Concomitant]
  4. ZOCOR [Concomitant]
  5. LEXAPRO [Concomitant]
  6. MOBIC [Concomitant]
  7. NEURONTIN [Concomitant]
  8. TYLENOL [Concomitant]

REACTIONS (4)
  - CRYING [None]
  - DEPRESSION [None]
  - INSOMNIA [None]
  - MOOD SWINGS [None]
